FAERS Safety Report 17600360 (Version 11)
Quarter: 2021Q4

REPORT INFORMATION
  Report Type: Spontaneous
  Country: FR (occurrence: FR)
  Receive Date: 20200330
  Receipt Date: 20211229
  Transmission Date: 20220303
  Serious: Yes (Congenital Anomaly, Other)
  Sender: FDA-Public Use
  Company Number: FR-BRISTOL-MYERS SQUIBB COMPANY-20727152

PATIENT
  Sex: Female

DRUGS (2)
  1. EFAVIRENZ [Suspect]
     Active Substance: EFAVIRENZ
     Indication: HIV infection
     Dosage: UNK
     Route: 064
  2. EFAVIRENZ [Suspect]
     Active Substance: EFAVIRENZ
     Dosage: UNK
     Route: 064

REACTIONS (4)
  - Pachygyria [Unknown]
  - White matter lesion [Unknown]
  - Cerebral ventricle dilatation [Unknown]
  - Foetal exposure during pregnancy [Recovered/Resolved]
